FAERS Safety Report 6840059-5 (Version None)
Quarter: 2010Q3

REPORT INFORMATION
  Report Type: 
  Country: None (occurrence: None)
  Receive Date: 20100714
  Receipt Date: 20100707
  Transmission Date: 20110219
  Serious: Yes (Other)
  Sender: FDA-Public Use
  Company Number: US-JNJCH-2010016120

PATIENT
  Age: 50 Year
  Sex: Male
  Weight: 90.7 kg

DRUGS (3)
  1. ZYRTEC [Suspect]
     Indication: HYPERSENSITIVITY
     Route: 048
  2. VENTOLIN [Concomitant]
     Indication: ASTHMA
     Dosage: TEXT:UNKNOWN
     Route: 065
  3. ADVAIR DISKUS 100/50 [Concomitant]
     Indication: ASTHMA
     Dosage: TEXT:UNKNOWN
     Route: 065

REACTIONS (3)
  - DYSPNOEA [None]
  - EXPIRED DRUG ADMINISTERED [None]
  - RASH MACULAR [None]
